FAERS Safety Report 7450061-0 (Version None)
Quarter: 2011Q2

REPORT INFORMATION
  Report Type: 
  Country: None (occurrence: None)
  Receive Date: 20110421
  Receipt Date: 20110302
  Transmission Date: 20111010
  Serious: Yes (Other)
  Sender: FDA-Public Use
  Company Number: 2011-0653

PATIENT
  Age: 37 Year
  Sex: Male

DRUGS (4)
  1. ZOLEDRONIC ACID [Concomitant]
  2. LANREOTIDE AUTOGEL (LANREOTIDE) (LANREOTIDE ACETATE) [Suspect]
     Indication: NEUROENDOCRINE CARCINOMA
     Dosage: (90 MG) ; (120 MG)
     Dates: start: 20080101
  3. LANREOTIDE AUTOGEL (LANREOTIDE) (LANREOTIDE ACETATE) [Suspect]
     Indication: NEUROENDOCRINE CARCINOMA
     Dosage: (90 MG) ; (120 MG)
     Dates: start: 20080101
  4. SIROLIMUS (RAPAMUNE) [Concomitant]

REACTIONS (1)
  - ADRENAL INSUFFICIENCY [None]
